FAERS Safety Report 7645978-8 (Version None)
Quarter: 2011Q3

REPORT INFORMATION
  Report Type: 
  Country: None (occurrence: None)
  Receive Date: 20110729
  Receipt Date: 20110720
  Transmission Date: 20111222
  Serious: Yes (Other)
  Sender: FDA-Public Use
  Company Number: AU-ASTRAZENECA-2011SE36167

PATIENT
  Age: 50 Year
  Sex: Male

DRUGS (3)
  1. STEMETIN [Concomitant]
     Indication: VERTIGO
  2. ENDEP [Concomitant]
  3. CRESTOR [Suspect]
     Route: 048
     Dates: end: 20110609

REACTIONS (3)
  - BLOOD CREATINE PHOSPHOKINASE INCREASED [None]
  - MUSCLE SPASMS [None]
  - MUSCLE TIGHTNESS [None]
